FAERS Safety Report 5603335-X (Version None)
Quarter: 2008Q1

REPORT INFORMATION
  Report Type: 
  Country: None (occurrence: None)
  Receive Date: 20080122
  Receipt Date: 20080103
  Transmission Date: 20080703
  Serious: Yes (Life-Threatening, Hospitalization, Disabling)
  Sender: FDA-Public Use
  Company Number: DSA_61862_2007

PATIENT
  Age: 65 Year
  Sex: Female

DRUGS (1)
  1. DIHYDERGOT /0017802/ (DIHYDERGOT) (NOT SPECIFIED) [Suspect]
     Indication: MIGRAINE
     Dosage: (DF)
     Dates: start: 19800101, end: 19950801

REACTIONS (13)
  - BACK PAIN [None]
  - DIPLEGIA [None]
  - FALL [None]
  - LEG AMPUTATION [None]
  - MUSCLE SPASMS [None]
  - OSTEOMYELITIS [None]
  - PALLOR [None]
  - PERIPHERAL COLDNESS [None]
  - PERIPHERAL ISCHAEMIA [None]
  - SKIN GRAFT [None]
  - UPPER LIMB FRACTURE [None]
  - WOUND INFECTION [None]
  - WOUND NECROSIS [None]
